FAERS Safety Report 6355991-9 (Version None)
Quarter: 2009Q3

REPORT INFORMATION
  Report Type: 
  Country: None (occurrence: None)
  Receive Date: 20090915
  Receipt Date: 20090902
  Transmission Date: 20100115
  Serious: Yes (Death)
  Sender: FDA-Public Use
  Company Number: US-MYLANLABS-2009S1014418

PATIENT
  Age: 62 Year
  Sex: Female
  Weight: 127.92 kg

DRUGS (10)
  1. FENTANYL TRANSDERMAL SYSTEM [Suspect]
     Indication: ARTHRALGIA
     Route: 062
     Dates: start: 20060601, end: 20060711
  2. FLUOXETINE [Suspect]
  3. CYCLOBENZAPRINE HCL [Suspect]
  4. AMBIEN [Concomitant]
  5. FLUOXETINE [Concomitant]
  6. PIROXICAM [Concomitant]
  7. CYCLOBENZAPRINE [Concomitant]
  8. DIAZEPAM [Concomitant]
  9. CARISOPRODOL [Concomitant]
  10. PROMETHAZINE [Concomitant]

REACTIONS (3)
  - MULTIPLE DRUG OVERDOSE [None]
  - THERAPEUTIC AGENT TOXICITY [None]
  - THERAPY NAIVE [None]
